FAERS Safety Report 7175775-1 (Version None)
Quarter: 2010Q4

REPORT INFORMATION
  Report Type: 
  Country: None (occurrence: None)
  Receive Date: 20101215
  Receipt Date: 20101215
  Transmission Date: 20110411
  Serious: No
  Sender: FDA-Public Use
  Company Number: None

PATIENT
  Sex: Female
  Weight: 54.4316 kg

DRUGS (1)
  1. GADOLINIUM [Suspect]

REACTIONS (5)
  - CONTRAST MEDIA REACTION [None]
  - LUNG DISORDER [None]
  - MUSCULOSKELETAL STIFFNESS [None]
  - RADIATION INJURY [None]
  - TRISMUS [None]
